FAERS Safety Report 8473973-8 (Version None)
Quarter: 2012Q2

REPORT INFORMATION
  Report Type: 
  Country: None (occurrence: None)
  Receive Date: 20120628
  Receipt Date: 20120529
  Transmission Date: 20120825
  Serious: Yes (Other)
  Sender: FDA-Public Use
  Company Number: US-MYLANLABS-2012S1004720

PATIENT
  Age: 25 Year
  Sex: Female

DRUGS (4)
  1. CLOZAPINE [Suspect]
     Dates: start: 20120228, end: 20120322
  2. ABILIFY [Concomitant]
     Dates: start: 20120228, end: 20120330
  3. CLOZAPINE [Suspect]
     Indication: PSYCHOTIC DISORDER
     Dates: start: 20120228, end: 20120322
  4. LAMICTAL [Concomitant]
     Dates: start: 20120228, end: 20120330

REACTIONS (2)
  - LEUKOPENIA [None]
  - GRANULOCYTOPENIA [None]
